FAERS Safety Report 6619781-1 (Version None)
Quarter: 2010Q1

REPORT INFORMATION
  Report Type: 
  Country: None (occurrence: None)
  Receive Date: 20100309
  Receipt Date: 20100302
  Transmission Date: 20100710
  Serious: Yes (Other)
  Sender: FDA-Public Use
  Company Number: PHHY2010BR02896

PATIENT
  Sex: Male

DRUGS (6)
  1. DIOVAN [Suspect]
     Indication: HYPERTENSION
     Dosage: 160 MG,1 TABLET PER DAY
     Dates: start: 20070101
  2. DIOVAN [Interacting]
     Dosage: 320 MG,1 TABLET PER DAY
  3. ANCORON [Concomitant]
     Indication: BLOOD PRESSURE
     Dosage: ONCE PER DAY
  4. ANGIPRESS [Concomitant]
     Indication: CARDIAC DISORDER
     Dosage: ONCE PER DAY
  5. NPH INSULIN [Concomitant]
     Dosage: TWICE PER DAY.
     Route: 058
  6. CAPOTEN [Interacting]

REACTIONS (2)
  - CEREBRAL ISCHAEMIA [None]
  - HYPERTENSION [None]
